FAERS Safety Report 5862140-X (Version None)
Quarter: 2008Q3

REPORT INFORMATION
  Report Type: 
  Country: None (occurrence: None)
  Receive Date: 20080828
  Receipt Date: 20080124
  Transmission Date: 20090109
  Serious: No
  Sender: FDA-Public Use
  Company Number: A0706643A

PATIENT
  Sex: Male

DRUGS (2)
  1. ZOVIRAX [Suspect]
     Indication: HERPES VIRUS INFECTION
     Route: 048
  2. VALTREX [Suspect]
     Indication: HERPES VIRUS INFECTION
     Route: 048

REACTIONS (2)
  - HERPES VIRUS INFECTION [None]
  - THERAPEUTIC RESPONSE DECREASED [None]
